FAERS Safety Report 9431827 (Version 4)
Quarter: 2013Q4

REPORT INFORMATION
  Report Type: Report from Study
  Country: PL (occurrence: PL)
  Receive Date: 20130731
  Receipt Date: 20131101
  Transmission Date: 20140711
  Serious: Yes (Hospitalization)
  Sender: FDA-Public Use
  Company Number: PHHO2013PL009675

PATIENT
  Age: 43 Year
  Sex: Male

DRUGS (3)
  1. FTY 720 [Suspect]
     Indication: MULTIPLE SCLEROSIS
     Dosage: 0.5 MG, QD
     Route: 048
     Dates: start: 20110302, end: 20130722
  2. ATORIS [Concomitant]
     Indication: HYPERCHOLESTEROLAEMIA
     Dosage: 20 MG, QD
     Dates: start: 20110303
  3. LISIHEXAL [Concomitant]
     Indication: BLOOD PRESSURE INCREASED
     Dosage: 5 MG, BID
     Route: 048
     Dates: start: 20110303

REACTIONS (1)
  - Ventricular tachycardia [Recovered/Resolved]
